FAERS Safety Report 10757405 (Version 2)
Quarter: 2015Q1

REPORT INFORMATION
  Report Type: Spontaneous
  Country: US (occurrence: US)
  Receive Date: 20150203
  Receipt Date: 20150316
  Transmission Date: 20150721
  Serious: No
  Sender: FDA-Public Use
  Company Number: US-BAYER-2015-015497

PATIENT
  Age: 32 Year
  Sex: Female

DRUGS (1)
  1. MIRENA [Suspect]
     Active Substance: LEVONORGESTREL
     Indication: CONTRACEPTION
     Dosage: 20 MCG/24HR, CONT
     Route: 015
     Dates: start: 20101215, end: 20150129

REACTIONS (4)
  - Drug ineffective [None]
  - Hypomenorrhoea [None]
  - Amenorrhoea [None]
  - Pregnancy with contraceptive device [None]

NARRATIVE: CASE EVENT DATE: 201412
